FAERS Safety Report 4510469-X (Version None)
Quarter: 2004Q4

REPORT INFORMATION
  Report Type: 
  Country: None (occurrence: None)
  Receive Date: 20041124
  Receipt Date: 20041112
  Transmission Date: 20050328
  Serious: Yes (Hospitalization)
  Sender: FDA-Public Use
  Company Number: FR-GLAXOSMITHKLINE-B0357051A

PATIENT
  Age: 70 Year
  Sex: Male

DRUGS (4)
  1. ZOPHREN [Suspect]
     Dosage: 1MG PER DAY
     Route: 042
     Dates: start: 20041020, end: 20041020
  2. CYCLOPHOSPHAMIDE [Suspect]
     Indication: NEUROPATHY
     Dosage: 800MG PER DAY
     Route: 042
     Dates: start: 20041020, end: 20041020
  3. UROMITEXAN [Suspect]
     Dosage: 800MG PER DAY
     Route: 042
     Dates: start: 20041020, end: 20041020
  4. SANDOGLOBULIN [Suspect]
     Indication: NEUROPATHY
     Dosage: 60G PER DAY
     Route: 042
     Dates: start: 20041018, end: 20041018

REACTIONS (1)
  - CYSTITIS HAEMORRHAGIC [None]
